FAERS Safety Report 22537734 (Version 1)
Quarter: 2023Q2

REPORT INFORMATION
  Report Type: Spontaneous
  Country: US (occurrence: None)
  Receive Date: 20230607
  Receipt Date: 20230607
  Transmission Date: 20230721
  Serious: No
  Sender: FDA-Public Use
  Company Number: None

PATIENT
  Sex: Male

DRUGS (21)
  1. LENALIDOMIDE [Suspect]
     Active Substance: LENALIDOMIDE
     Indication: Plasma cell myeloma
     Dosage: 1CAP QD PO  21/28D CYCLE?
     Route: 048
  2. DECADRON [Concomitant]
     Active Substance: DEXAMETHASONE
  3. ASPIRIN [Concomitant]
     Active Substance: ASPIRIN
  4. ATORVASTATIN [Concomitant]
     Active Substance: ATORVASTATIN
  5. MINERALS\VITAMINS [Concomitant]
     Active Substance: MINERALS\VITAMINS
  6. VITAMIN D3 [Concomitant]
     Active Substance: CHOLECALCIFEROL
  7. COPPER CAPS [Concomitant]
  8. FERROSUL [Concomitant]
  9. FINASTERIDE [Concomitant]
     Active Substance: FINASTERIDE
  10. LEVOTHYROXINE [Concomitant]
     Active Substance: LEVOTHYROXINE
  11. PROPAFENONE [Concomitant]
     Active Substance: PROPAFENONE
  12. TUMS [Concomitant]
     Active Substance: CALCIUM CARBONATE
  13. VITAMIN B12 [Concomitant]
     Active Substance: CYANOCOBALAMIN
  14. ZINC [Concomitant]
     Active Substance: ZINC
  15. XGEVA SQ [Concomitant]
  16. PREDNISONE [Concomitant]
     Active Substance: PREDNISONE
  17. VITAMIN D [Concomitant]
     Active Substance: VITAMIN D NOS
  18. GABAPENTIN [Concomitant]
     Active Substance: GABAPENTIN
  19. BENADRYL [Concomitant]
     Active Substance: DIPHENHYDRAMINE HYDROCHLORIDE
  20. DEXAMETHASONE [Concomitant]
     Active Substance: DEXAMETHASONE
  21. BELCAID [Concomitant]

REACTIONS (2)
  - Neutropenia [None]
  - Therapy interrupted [None]
